FAERS Safety Report 8605768-6 (Version None)
Quarter: 2012Q3

REPORT INFORMATION
  Report Type: 
  Country: None (occurrence: None)
  Receive Date: 20120820
  Receipt Date: 20120810
  Transmission Date: 20120928
  Serious: Yes (Other)
  Sender: FDA-Public Use
  Company Number: US-ASTRAZENECA-2011SE67803

PATIENT
  Age: 576 Month
  Sex: Female
  Weight: 74.8 kg

DRUGS (7)
  1. SEROQUEL XR [Suspect]
     Indication: BIPOLAR I DISORDER
     Route: 048
     Dates: start: 20110501
  2. EFFEXOR [Concomitant]
  3. TEGRETOL [Concomitant]
  4. SEROQUEL XR [Suspect]
     Indication: BIPOLAR DISORDER
     Route: 048
     Dates: start: 20110501
  5. SEROQUEL XR [Suspect]
     Indication: PERSONALITY DISORDER
     Route: 048
     Dates: start: 20110501
  6. NEURONTIN [Concomitant]
  7. SEROQUEL XR [Suspect]
     Indication: MAJOR DEPRESSION
     Route: 048
     Dates: start: 20110501

REACTIONS (8)
  - DRUG DOSE OMISSION [None]
  - DEPRESSION [None]
  - SUICIDAL IDEATION [None]
  - SELF-INJURIOUS IDEATION [None]
  - MANIA [None]
  - INSOMNIA [None]
  - VIOLENCE-RELATED SYMPTOM [None]
  - NASOPHARYNGITIS [None]
